FAERS Safety Report 8622157-9 (Version None)
Quarter: 2012Q3

REPORT INFORMATION
  Report Type: 
  Country: None (occurrence: None)
  Receive Date: 20120826
  Receipt Date: 20111110
  Transmission Date: 20120928
  Serious: Yes (Hospitalization)
  Sender: FDA-Public Use
  Company Number: PHHY2011DE70832

PATIENT
  Sex: Female

DRUGS (1)
  1. GILENYA [Suspect]
     Indication: MULTIPLE SCLEROSIS
     Dosage: 0.5 MG, PER DAY
     Route: 048
     Dates: start: 20110614, end: 20110727

REACTIONS (5)
  - ERYTHEMA [None]
  - HERPES SIMPLEX [None]
  - SWELLING [None]
  - PERIORBITAL INFECTION [None]
  - GROIN ABSCESS [None]
